FAERS Safety Report 9457620 (Version 1)
Quarter: 2013Q3

REPORT INFORMATION
  Report Type: Spontaneous
  Country: US (occurrence: None)
  Receive Date: 20130809
  Receipt Date: 20130809
  Transmission Date: 20140515
  Serious: Yes (Other)
  Sender: FDA-Public Use
  Company Number: MC201300398

PATIENT
  Age: 85 Year
  Sex: Female

DRUGS (4)
  1. CLEVIPREX [Suspect]
     Indication: HYPERTENSION
     Dosage: HR INFUSION
     Route: 042
     Dates: start: 20130730, end: 20130730
  2. LEVOPHED (NOREPINEPHRINE BITARTRATE) [Concomitant]
  3. NITROGLYCERIN (NITROGLYCERIN) [Concomitant]
  4. HYDRALAZINE (HYDRALAZINE) [Concomitant]

REACTIONS (2)
  - PO2 decreased [None]
  - Oxygen saturation decreased [None]
